FAERS Safety Report 6014145-6 (Version None)
Quarter: 2008Q4

REPORT INFORMATION
  Report Type: 
  Country: None (occurrence: None)
  Receive Date: 20081219
  Receipt Date: 20080115
  Transmission Date: 20090506
  Serious: No
  Sender: FDA-Public Use
  Company Number: A0703349A

PATIENT
  Age: 74 Year
  Sex: Male

DRUGS (5)
  1. AVODART [Suspect]
     Indication: BENIGN PROSTATIC HYPERPLASIA
     Dosage: .5MG PER DAY
     Route: 048
     Dates: start: 20070701
  2. NORVASC [Concomitant]
  3. CARDURA [Concomitant]
  4. CELEBREX [Concomitant]
  5. LIPITOR [Concomitant]

REACTIONS (1)
  - LIBIDO DECREASED [None]
